FAERS Safety Report 19459379 (Version 1)
Quarter: 2021Q2

REPORT INFORMATION
  Report Type: Spontaneous
  Country: US (occurrence: US)
  Receive Date: 20210624
  Receipt Date: 20210624
  Transmission Date: 20210717
  Serious: No
  Sender: FDA-Public Use
  Company Number: US-AMGEN-USASP2021095222

PATIENT
  Sex: Female

DRUGS (6)
  1. REPATHA [Suspect]
     Active Substance: EVOLOCUMAB
     Indication: TYPE V HYPERLIPIDAEMIA
     Dosage: 140 MILLIGRAM, Q2WK
     Route: 058
     Dates: start: 20170508
  2. LISINOPRIL. [Concomitant]
     Active Substance: LISINOPRIL
  3. NEOMYCIN. [Concomitant]
     Active Substance: NEOMYCIN
  4. ATROPINE. [Concomitant]
     Active Substance: ATROPINE
  5. PRAVASTATIN. [Concomitant]
     Active Substance: PRAVASTATIN
  6. FLONASE ALLERGY RELIEF [Concomitant]
     Active Substance: FLUTICASONE PROPIONATE

REACTIONS (1)
  - Off label use [Not Recovered/Not Resolved]
